FAERS Safety Report 20507179 (Version 1)
Quarter: 2022Q1

REPORT INFORMATION
  Report Type: Spontaneous
  Country: DE (occurrence: DE)
  Receive Date: 20220223
  Receipt Date: 20220223
  Transmission Date: 20220423
  Serious: Yes (Hospitalization, Other)
  Sender: FDA-Public Use
  Company Number: DE-MYLANLABS-2022M1010823

PATIENT
  Age: 84 Year
  Sex: Female

DRUGS (2)
  1. TRAMADOL HYDROCHLORIDE [Suspect]
     Active Substance: TRAMADOL HYDROCHLORIDE
     Indication: Pain
     Dosage: 300 MILLIGRAM, 1/DAY
     Route: 065
  2. METOCLOPRAMIDE [Suspect]
     Active Substance: METOCLOPRAMIDE
     Indication: Product used for unknown indication
     Dosage: UNK UNK, AS NEEDED
     Route: 065

REACTIONS (8)
  - Delirium [Recovering/Resolving]
  - Serotonin syndrome [Recovering/Resolving]
  - Renal impairment [Recovering/Resolving]
  - Confusional state [Recovering/Resolving]
  - Osteolysis [Unknown]
  - Aggression [Recovering/Resolving]
  - Disease progression [Unknown]
  - Hypercalcaemia [Recovering/Resolving]
